FAERS Safety Report 13802451 (Version 6)
Quarter: 2018Q1

REPORT INFORMATION
  Report Type: Report from Study
  Country: US (occurrence: US)
  Receive Date: 20170728
  Receipt Date: 20180215
  Transmission Date: 20180508
  Serious: Yes (Hospitalization, Other)
  Sender: FDA-Public Use
  Company Number: US-BAYER-2017-123542

PATIENT
  Age: 76 Year
  Sex: Male

DRUGS (5)
  1. STIVARGA [Suspect]
     Active Substance: REGORAFENIB
     Indication: HEPATIC CANCER
     Dosage: 160 MG, QD
     Route: 048
     Dates: start: 20170622, end: 2017
  2. STIVARGA [Suspect]
     Active Substance: REGORAFENIB
     Indication: HEPATIC CANCER
     Dosage: DAILY DOSE 120 MG
     Route: 048
     Dates: start: 2017, end: 2017
  3. LASIX [Concomitant]
     Active Substance: FUROSEMIDE
  4. STIVARGA [Suspect]
     Active Substance: REGORAFENIB
     Indication: HEPATIC CANCER
     Dosage: 200 MG, QD (NEED TO BE CLARIFIED)
     Route: 048
     Dates: start: 2017
  5. STIVARGA [Suspect]
     Active Substance: REGORAFENIB
     Indication: HEPATIC CANCER
     Dosage: 140MG DAILY DOSE (NEED TO BE CLARIFIED)
     Route: 048

REACTIONS (30)
  - Tongue discomfort [None]
  - Pain of skin [None]
  - Eating disorder [None]
  - Weight decreased [None]
  - Pollakiuria [None]
  - Dizziness [None]
  - Abdominal pain upper [None]
  - Rash vesicular [None]
  - Oropharyngeal pain [None]
  - Chapped lips [None]
  - Oral mucosal blistering [Not Recovered/Not Resolved]
  - Blister [Not Recovered/Not Resolved]
  - Fatigue [Not Recovered/Not Resolved]
  - Skin exfoliation [None]
  - Stomatitis [None]
  - Pain in extremity [None]
  - Dry mouth [None]
  - Oropharyngeal pain [None]
  - Oral pain [None]
  - Fatigue [None]
  - Tongue blistering [Not Recovered/Not Resolved]
  - Decreased appetite [None]
  - Tooth fracture [None]
  - Stomatitis [None]
  - Oral pain [None]
  - Dehydration [None]
  - Constipation [None]
  - Speech disorder [None]
  - Gait disturbance [None]
  - Asthenia [Not Recovered/Not Resolved]

NARRATIVE: CASE EVENT DATE: 2017
